FAERS Safety Report 4425780-0 (Version None)
Quarter: 2004Q3

REPORT INFORMATION
  Report Type: 
  Country: None (occurrence: None)
  Receive Date: 20040719
  Receipt Date: 20040322
  Transmission Date: 20050211
  Serious: No
  Sender: FDA-Public Use
  Company Number: A03200400927

PATIENT
  Age: 67 Year
  Sex: Male

DRUGS (5)
  1. UROXATRAL [Suspect]
     Dosage: 10 MG - ORAL
     Route: 048
  2. GATIFLOXACIN [Concomitant]
  3. ESCITALOPRAM OXALATE [Concomitant]
  4. HYDROCHLOROTHIAZIDE [Concomitant]
  5. FEXOFENADINE+PSEUDOEPHEDRINE [Concomitant]

REACTIONS (5)
  - DIZZINESS [None]
  - FEELING ABNORMAL [None]
  - NAUSEA [None]
  - PYREXIA [None]
  - VOMITING [None]
